FAERS Safety Report 21385515 (Version 1)
Quarter: 2022Q3

REPORT INFORMATION
  Report Type: Report from Study
  Country: US (occurrence: US)
  Receive Date: 20220928
  Receipt Date: 20220928
  Transmission Date: 20221027
  Serious: Yes (Other)
  Sender: FDA-Public Use
  Company Number: US-ABBVIE-4132278

PATIENT
  Sex: Female

DRUGS (4)
  1. HUMIRA [Suspect]
     Active Substance: ADALIMUMAB
     Indication: Product used for unknown indication
     Route: 058
  2. Pfizer/BioNTech Vaccine [Concomitant]
     Indication: COVID-19 immunisation
     Dosage: THIRD DOSE-  FREQUENCY- ONE IN ONCE
     Route: 030
     Dates: start: 20211230, end: 20211230
  3. Pfizer/BioNTech Vaccine [Concomitant]
     Indication: COVID-19 immunisation
     Dosage: FIRST DOSE- FREQUENCY- ONE IN ONCE
     Route: 030
     Dates: start: 20210331, end: 20210331
  4. Pfizer/BioNTech Vaccine [Concomitant]
     Indication: COVID-19 immunisation
     Dosage: SECOND DOSE-  FREQUENCY- ONE IN ONCE
     Route: 030
     Dates: start: 20210421, end: 20210421

REACTIONS (1)
  - Neoplasm malignant [Unknown]

NARRATIVE: CASE EVENT DATE: 20210101
